FAERS Safety Report 12161686 (Version 1)
Quarter: 2016Q1

REPORT INFORMATION
  Report Type: Spontaneous
  Country: US (occurrence: US)
  Receive Date: 20160309
  Receipt Date: 20160309
  Transmission Date: 20160526
  Serious: Yes (Hospitalization)
  Sender: FDA-Public Use
  Company Number: US-BEH-2016059471

PATIENT
  Sex: Male
  Weight: 80 kg

DRUGS (14)
  1. HIZENTRA [Suspect]
     Active Substance: HUMAN IMMUNOGLOBULIN G
     Indication: IMMUNODEFICIENCY COMMON VARIABLE
     Dosage: 10 GM 50 ML VIALS
     Route: 058
     Dates: start: 20150915
  2. LISINOPRIL. [Concomitant]
     Active Substance: LISINOPRIL
  3. METOPROLOL. [Concomitant]
     Active Substance: METOPROLOL
  4. PHOSLO [Concomitant]
     Active Substance: CALCIUM ACETATE
  5. CLONIDINE. [Concomitant]
     Active Substance: CLONIDINE
  6. NIFEDIPINE. [Concomitant]
     Active Substance: NIFEDIPINE
  7. DIPHENHYDRAMINE. [Concomitant]
     Active Substance: DIPHENHYDRAMINE
  8. HYDRALAZINE [Concomitant]
     Active Substance: HYDRALAZINE HYDROCHLORIDE
  9. HIZENTRA [Suspect]
     Active Substance: HUMAN IMMUNOGLOBULIN G
     Indication: IMMUNODEFICIENCY COMMON VARIABLE
     Dosage: 10 GM 50 ML VIALS
     Route: 058
     Dates: start: 20150915
  10. MEPRON [Concomitant]
     Active Substance: ATOVAQUONE
  11. OMEPRAZOLE. [Concomitant]
     Active Substance: OMEPRAZOLE
  12. ACETAMINOPHEN. [Concomitant]
     Active Substance: ACETAMINOPHEN
  13. EPIPEN [Concomitant]
     Active Substance: EPINEPHRINE
  14. PREDNISONE. [Concomitant]
     Active Substance: PREDNISONE

REACTIONS (1)
  - Muscle spasms [Unknown]
